FAERS Safety Report 7573962 (Version 4)
Quarter: 2013Q1

REPORT INFORMATION
  Report Type: Spontaneous
  Country: US (occurrence: US)
  Receive Date: 20100907
  Receipt Date: 20130307
  Transmission Date: 20140127
  Serious: Yes (Hospitalization)
  Sender: FDA-Public Use
  Company Number: US-BAYER-201032465NA

PATIENT
  Age: 36 Year
  Sex: Female
  Weight: 75 kg

DRUGS (12)
  1. YASMIN [Suspect]
     Indication: OVARIAN CYST
     Dosage: UNK UNK, UNK
     Route: 048
     Dates: start: 200709, end: 200710
  2. SYNTHROID [Concomitant]
     Dosage: UNK UNK, QD
  3. BENADRYL N [Concomitant]
  4. CELEXA [Concomitant]
  5. ZOFRAN [Concomitant]
  6. AMOXICILLIN [Concomitant]
     Dosage: UNK
     Dates: start: 20071010
  7. BENADRYL [Concomitant]
     Dosage: UNK
     Dates: start: 20070902
  8. MORPHINE [Concomitant]
     Dosage: UNK
     Dates: start: 20070902
  9. MORPHINE [Concomitant]
     Dosage: UNK
     Dates: start: 20071010
  10. PROMETHAZINE [Concomitant]
  11. OXYCODONE W/PARACETAMOL [Concomitant]
  12. IBUPROFEN [Concomitant]

REACTIONS (1)
  - Pulmonary embolism [Recovered/Resolved]
